FAERS Safety Report 25757690 (Version 2)
Quarter: 2025Q4

REPORT INFORMATION
  Report Type: Spontaneous
  Country: US (occurrence: US)
  Receive Date: 20250903
  Receipt Date: 20251124
  Transmission Date: 20260118
  Serious: Yes (Other)
  Sender: SANOFI AVENTIS
  Company Number: US-SA-2025SA263941

PATIENT
  Age: 2 Year
  Sex: Female

DRUGS (1)
  1. DUPIXENT [Suspect]
     Active Substance: DUPILUMAB
     Indication: Dermatitis atopic
     Dosage: 200 MG, Q4W, SELF INJECTION
     Dates: start: 202505, end: 2025

REACTIONS (3)
  - Seizure [Unknown]
  - Febrile convulsion [Unknown]
  - Eczema [Unknown]

NARRATIVE: CASE EVENT DATE: 20250101
